FAERS Safety Report 17961090 (Version 2)
Quarter: 2021Q3

REPORT INFORMATION
  Report Type: Spontaneous
  Country: US (occurrence: US)
  Receive Date: 20200629
  Receipt Date: 20210728
  Transmission Date: 20211014
  Serious: Yes (Other)
  Sender: FDA-Public Use
  Company Number: US-ROCHE-2577712

PATIENT
  Age: 50 Year
  Sex: Female

DRUGS (4)
  1. XELODA [Suspect]
     Active Substance: CAPECITABINE
     Indication: BREAST CANCER
     Route: 048
     Dates: start: 202003
  2. XELODA [Suspect]
     Active Substance: CAPECITABINE
     Dosage: THERAPY ONGOING STATUS: YES
     Route: 048
     Dates: start: 202003
  3. XELODA [Suspect]
     Active Substance: CAPECITABINE
     Route: 048
     Dates: start: 20200401
  4. XELODA [Suspect]
     Active Substance: CAPECITABINE
     Dosage: THERAPY ONGOING STATUS: YES
     Route: 048
     Dates: start: 202005

REACTIONS (5)
  - Skin discolouration [Unknown]
  - Palmar-plantar erythrodysaesthesia syndrome [Unknown]
  - Dandruff [Unknown]
  - Oral pain [Unknown]
  - Fatigue [Unknown]

NARRATIVE: CASE EVENT DATE: 20200512
